FAERS Safety Report 5741240-9 (Version None)
Quarter: 2008Q2

REPORT INFORMATION
  Report Type: 
  Country: None (occurrence: None)
  Receive Date: 20080516
  Receipt Date: 20080509
  Transmission Date: 20081010
  Serious: Yes (Other)
  Sender: FDA-Public Use
  Company Number: US-PFIZER INC-2008041444

PATIENT
  Sex: Male
  Weight: 89.4 kg

DRUGS (2)
  1. CHANTIX [Suspect]
     Indication: SMOKING CESSATION THERAPY
     Dates: start: 20080101, end: 20080401
  2. TRAMADOL HCL [Concomitant]
     Indication: BACK PAIN

REACTIONS (5)
  - CARDIAC DISORDER [None]
  - CHEST PAIN [None]
  - HYPERTENSION [None]
  - NECK PAIN [None]
  - PAIN IN EXTREMITY [None]
